FAERS Safety Report 17978555 (Version 1)
Quarter: 2020Q3

REPORT INFORMATION
  Report Type: Spontaneous
  Country: KR (occurrence: KR)
  Receive Date: 20200703
  Receipt Date: 20200703
  Transmission Date: 20201103
  Serious: Yes (Death, Other)
  Sender: FDA-Public Use
  Company Number: KR-STRIDES ARCOLAB LIMITED-2020SP007583

PATIENT
  Age: 36 Year
  Sex: Male

DRUGS (1)
  1. METRONIDAZOLE. [Suspect]
     Active Substance: METRONIDAZOLE
     Indication: ANAL INFECTION
     Dosage: 500 MILLIGRAM, TID
     Route: 065

REACTIONS (4)
  - Disorientation [Unknown]
  - Toxic encephalopathy [Fatal]
  - Loss of consciousness [Unknown]
  - Dysarthria [Unknown]
